FAERS Safety Report 4355087-1 (Version None)
Quarter: 2004Q2

REPORT INFORMATION
  Report Type: 
  Country: None (occurrence: None)
  Receive Date: 20040504
  Receipt Date: 20040422
  Transmission Date: 20050107
  Serious: Yes (Hospitalization)
  Sender: FDA-Public Use
  Company Number: 04P-163-0258407

PATIENT
  Age: 44 Year
  Sex: Female
  Weight: 71 kg

DRUGS (6)
  1. ULTANE [Suspect]
     Indication: ANAESTHESIA
     Dosage: 15, INHALATION
     Route: 055
     Dates: start: 20040421, end: 20040421
  2. FENTANYL [Concomitant]
  3. MIDAZOLAM HYDROCHLORIDE [Concomitant]
  4. LIDOCAINE 1% [Concomitant]
  5. PROPOFOL [Concomitant]
  6. CEFAZOLIN SODIUM [Concomitant]

REACTIONS (8)
  - ANAESTHETIC COMPLICATION [None]
  - ATRIAL FIBRILLATION [None]
  - BRADYCARDIA [None]
  - CARDIAC ARREST [None]
  - CONVULSION [None]
  - GENERALISED ERYTHEMA [None]
  - HYPOTENSION [None]
  - SUPRAVENTRICULAR TACHYCARDIA [None]
